FAERS Safety Report 10402487 (Version 1)
Quarter: 2014Q3

REPORT INFORMATION
  Report Type: Spontaneous
  Country: IT (occurrence: IT)
  Receive Date: 20140822
  Receipt Date: 20140822
  Transmission Date: 20150326
  Serious: Yes (Other)
  Sender: FDA-Public Use
  Company Number: IT-WATSON-2014-18026

PATIENT
  Age: 20 Year
  Sex: Female

DRUGS (3)
  1. PREDNISONE (UNKNOWN) [Suspect]
     Active Substance: PREDNISONE
     Indication: VASCULITIS CEREBRAL
     Dosage: 60 MG, DAILY
     Route: 065
     Dates: start: 201305
  2. CYCLOPHOSPHAMIDE (UNKNOWN) [Suspect]
     Active Substance: CYCLOPHOSPHAMIDE
     Indication: VASCULITIS CEREBRAL
     Dosage: 150 MG, DAILY
     Route: 048
     Dates: start: 200305
  3. MYCOPHENOLATE MOFETIL (UNKNOWN) [Suspect]
     Active Substance: MYCOPHENOLATE MOFETIL
     Indication: VASCULITIS CEREBRAL
     Dosage: 200 MG, DAILY
     Route: 065
     Dates: start: 200309

REACTIONS (2)
  - Cystitis haemorrhagic [Unknown]
  - Leukopenia [Unknown]
